FAERS Safety Report 10162468 (Version 3)
Quarter: 2014Q2

REPORT INFORMATION
  Report Type: Spontaneous
  Country: JP (occurrence: JP)
  Receive Date: 20140509
  Receipt Date: 20140605
  Transmission Date: 20141212
  Serious: Yes (Hospitalization, Other)
  Sender: FDA-Public Use
  Company Number: JP-TEVA-472746USA

PATIENT
  Age: 82 Year
  Sex: Female

DRUGS (9)
  1. BENDAMUSTINE [Suspect]
     Indication: MANTLE CELL LYMPHOMA
     Dosage: DAILY DOSE: 90 MG/M2 X 2/28 DAYS; CYCLIC
     Route: 042
     Dates: start: 20140106, end: 20140107
  2. BENDAMUSTINE [Suspect]
     Indication: MANTLE CELL LYMPHOMA
     Dosage: DAILY DOSE: 90 MG/M2 X 2/28 DAYS; CYCLIC
     Route: 042
     Dates: start: 20140202, end: 20140203
  3. BENDAMUSTINE [Suspect]
     Dosage: 4TH CYCLE
     Route: 042
     Dates: start: 20140407, end: 20140408
  4. RITUXIMAB [Concomitant]
     Dosage: DAILY DOSE: 375 MG/M2 X 2/28 DAYS; CYCLIC
     Route: 042
     Dates: start: 20140106, end: 20140202
  5. RITUXIMAB [Concomitant]
     Route: 042
     Dates: start: 20140202, end: 20140407
  6. RITUXIMAB [Concomitant]
     Route: 042
     Dates: start: 20140407
  7. PARENTERAL [Concomitant]
  8. ELDECALCITOL [Concomitant]
  9. MINODRONIC ACID HYDRATE [Concomitant]
     Indication: OSTEOPOROSIS

REACTIONS (3)
  - Decreased appetite [Recovering/Resolving]
  - Dysgeusia [Recovering/Resolving]
  - Bronchitis [Recovering/Resolving]
